FAERS Safety Report 5311854-9 (Version None)
Quarter: 2007Q2

REPORT INFORMATION
  Report Type: 
  Country: None (occurrence: None)
  Receive Date: 20070430
  Receipt Date: 20061229
  Transmission Date: 20071010
  Serious: No
  Sender: FDA-Public Use
  Company Number: 2002UW10870

PATIENT
  Age: 65 Year
  Sex: Male
  Weight: 73.9 kg

DRUGS (6)
  1. NEXIUM [Suspect]
     Indication: REFLUX OESOPHAGITIS
     Route: 048
     Dates: start: 20020101, end: 20040101
  2. NEXIUM [Suspect]
     Indication: GASTROOESOPHAGEAL REFLUX DISEASE
     Route: 048
     Dates: start: 20020101, end: 20040101
  3. NEXIUM [Suspect]
     Route: 048
     Dates: start: 20040101
  4. NEXIUM [Suspect]
     Route: 048
     Dates: start: 20040101
  5. LIPITOR [Concomitant]
     Route: 048
  6. ASPIRIN [Concomitant]
     Route: 048

REACTIONS (4)
  - DIZZINESS [None]
  - FALL [None]
  - THERAPEUTIC RESPONSE UNEXPECTED [None]
  - VENTRICULAR EXTRASYSTOLES [None]
